FAERS Safety Report 14273447 (Version 1)
Quarter: 2017Q4

REPORT INFORMATION
  Report Type: Spontaneous
  Country: US (occurrence: US)
  Receive Date: 20171211
  Receipt Date: 20171211
  Transmission Date: 20180321
  Serious: Yes (Disabling, Other)
  Sender: FDA-Public Use
  Company Number: US-OTSUKA-2017_006513

PATIENT

DRUGS (2)
  1. ABILIFY [Suspect]
     Active Substance: ARIPIPRAZOLE
     Indication: MAJOR DEPRESSION
     Dosage: UNK
     Route: 065
  2. ABILIFY [Suspect]
     Active Substance: ARIPIPRAZOLE
     Indication: BIPOLAR DISORDER
     Dosage: 10 MG, UNK
     Route: 065
     Dates: start: 201202, end: 201604

REACTIONS (12)
  - Suicide attempt [Unknown]
  - Suicidal ideation [Unknown]
  - Impulsive behaviour [Unknown]
  - Pain [Unknown]
  - Gambling [Unknown]
  - Disability [Unknown]
  - Off label use [Unknown]
  - Emotional distress [Unknown]
  - Injury [Unknown]
  - Condition aggravated [Unknown]
  - Obsessive-compulsive disorder [Unknown]
  - Anxiety [Unknown]
